FAERS Safety Report 17661738 (Version 1)
Quarter: 2020Q2

REPORT INFORMATION
  Report Type: Spontaneous
  Country: TW (occurrence: TW)
  Receive Date: 20200413
  Receipt Date: 20200413
  Transmission Date: 20200713
  Serious: Yes (Hospitalization)
  Sender: FDA-Public Use
  Company Number: TW-PFIZER INC-2019213252

PATIENT
  Age: 83 Year
  Sex: Male

DRUGS (5)
  1. INLYTA [Suspect]
     Active Substance: AXITINIB
     Indication: RENAL CELL CARCINOMA
     Dosage: 5 MG, 2X/DAY (BID)
     Route: 048
     Dates: start: 20190510, end: 20191017
  2. INLYTA [Suspect]
     Active Substance: AXITINIB
     Dosage: 5 MG, 2X/DAY (BID)
     Route: 048
     Dates: end: 20200408
  3. INLYTA [Suspect]
     Active Substance: AXITINIB
     Dosage: 5 MG, 2X/DAY (BID)
     Route: 048
     Dates: start: 201912
  4. INLYTA [Suspect]
     Active Substance: AXITINIB
     Dosage: 5 MG, 1X/DAY (QD)
     Route: 048
     Dates: start: 20200129
  5. INLYTA [Suspect]
     Active Substance: AXITINIB
     Dosage: 5 MG, 1X/DAY
     Route: 048
     Dates: start: 20191018, end: 201912

REACTIONS (11)
  - Skin wound [Recovering/Resolving]
  - Palmar-plantar erythrodysaesthesia syndrome [Unknown]
  - Intentional product use issue [Unknown]
  - Haematuria [Unknown]
  - Decreased appetite [Unknown]
  - Faeces discoloured [Unknown]
  - Gingival swelling [Recovering/Resolving]
  - Mouth ulceration [Recovering/Resolving]
  - Nasopharyngitis [Recovering/Resolving]
  - Hypertension [Recovered/Resolved]
  - Otitis media [Recovering/Resolving]

NARRATIVE: CASE EVENT DATE: 2019
